FAERS Safety Report 5093282-7 (Version None)
Quarter: 2006Q3

REPORT INFORMATION
  Report Type: 
  Country: None (occurrence: None)
  Receive Date: 20060828
  Receipt Date: 20060821
  Transmission Date: 20061208
  Serious: Yes (Death)
  Sender: FDA-Public Use
  Company Number: 2006-146950-NL

PATIENT
  Age: 6 Year
  Sex: Male

DRUGS (9)
  1. REMERON [Suspect]
     Indication: ATTENTION DEFICIT/HYPERACTIVITY DISORDER
     Dosage: ORAL
     Route: 048
  2. REMERON [Suspect]
     Indication: BIPOLAR DISORDER
     Dosage: ORAL
     Route: 048
  3. CLONIDINE [Suspect]
     Indication: ATTENTION DEFICIT/HYPERACTIVITY DISORDER
  4. CLONIDINE [Suspect]
     Indication: BIPOLAR DISORDER
  5. ASCORBIC ACID [Suspect]
  6. LITHIUM [Suspect]
     Indication: ATTENTION DEFICIT/HYPERACTIVITY DISORDER
  7. LITHIUM [Suspect]
     Indication: BIPOLAR DISORDER
  8. RISPERDAL [Suspect]
     Indication: ATTENTION DEFICIT/HYPERACTIVITY DISORDER
  9. RISPERDAL [Suspect]
     Indication: BIPOLAR DISORDER

REACTIONS (3)
  - ACCIDENTAL DEATH [None]
  - ACCIDENTAL EXPOSURE [None]
  - POST-TRAUMATIC STRESS DISORDER [None]
